FAERS Safety Report 6354969-9 (Version None)
Quarter: 2009Q3

REPORT INFORMATION
  Report Type: 
  Country: None (occurrence: None)
  Receive Date: 20090914
  Receipt Date: 20090908
  Transmission Date: 20100115
  Serious: Yes (Death, Hospitalization)
  Sender: FDA-Public Use
  Company Number: A0806057A

PATIENT
  Age: 68 Year
  Sex: Male
  Weight: 120.5 kg

DRUGS (2)
  1. AVANDIA [Suspect]
     Indication: DIABETES MELLITUS
     Dosage: 4MG TWICE PER DAY
     Route: 048
     Dates: end: 20050701
  2. AVANDAMET [Suspect]
     Indication: DIABETES MELLITUS
     Route: 048
     Dates: start: 20041215, end: 20050304

REACTIONS (3)
  - CARDIAC ARREST [None]
  - MYOCARDIAL INFARCTION [None]
  - RESPIRATORY FAILURE [None]
